FAERS Safety Report 7399996-8 (Version None)
Quarter: 2011Q2

REPORT INFORMATION
  Report Type: 
  Country: None (occurrence: None)
  Receive Date: 20110407
  Receipt Date: 20110325
  Transmission Date: 20111010
  Serious: Yes (Other)
  Sender: FDA-Public Use
  Company Number: PHHY2011CA24788

PATIENT
  Sex: Female

DRUGS (3)
  1. ACLASTA/ZOLEDRONATE [Suspect]
     Indication: OSTEOPOROSIS
     Dosage: 5 MG/100 ML YEARLY
     Route: 042
     Dates: start: 20100401
  2. VITAMIN D [Concomitant]
     Dosage: 1 DF, BID
  3. CALCIUM [Concomitant]
     Dosage: 1 DF, BID

REACTIONS (2)
  - SPINAL FRACTURE [None]
  - PAIN [None]
